FAERS Safety Report 10409572 (Version 1)
Quarter: 2014Q2

REPORT INFORMATION
  Report Type: Spontaneous
  Country: US (occurrence: None)
  Receive Date: 20140604
  Receipt Date: 20140604
  Transmission Date: 20141212
  Serious: No
  Sender: FDA-Public Use
  Company Number: 163-POMAL-14050583

PATIENT
  Sex: Female

DRUGS (11)
  1. POMALYST (POMALIDOMIDE) (2 MILLIGRAM, CAPSULES) [Suspect]
     Indication: PLASMA CELL MYELOMA
     Route: 048
     Dates: start: 20140411
  2. ACYCLOVIR (ACICLOVIR) (ACICLOVIR) [Concomitant]
  3. POTASSIUM CHLORIDE [Concomitant]
  4. MELATONIN [Concomitant]
  5. MULTIVITAMINS [Concomitant]
  6. TOPROL XL (METOPROLOLOL SUCCINATE0 [Concomitant]
  7. VITAMIN D (ERGOCALCIFEROL) [Concomitant]
  8. CALCIUM [Concomitant]
  9. DEXAMETHASONE [Concomitant]
  10. VELCADE (BORTEZOMIB) [Concomitant]
  11. SERRALINE [Concomitant]

REACTIONS (1)
  - Musculoskeletal pain [None]
